FAERS Safety Report 7167513 (Version 19)
Quarter: 2014Q4

REPORT INFORMATION
  Report Type: Report from Study
  Country: CA (occurrence: CA)
  Receive Date: 20091105
  Receipt Date: 20141103
  Transmission Date: 20150529
  Serious: Yes (Hospitalization, Other)
  Sender: FDA-Public Use
  Company Number: PHHY2009CA29648

PATIENT
  Sex: Male

DRUGS (1)
  1. SANDOSTATIN LAR DEPOT [Suspect]
     Active Substance: OCTREOTIDE ACETATE
     Indication: METASTATIC CARCINOID TUMOUR
     Dosage: 40 MG, EVERY FOUR WEEKS
     Route: 030
     Dates: start: 20060615

REACTIONS (22)
  - Confusional state [Unknown]
  - Rectal discharge [Unknown]
  - Nausea [Recovered/Resolved]
  - Blood pressure increased [Unknown]
  - Injection site swelling [Recovering/Resolving]
  - Wound [Unknown]
  - Cholelithiasis [Unknown]
  - Injection site bruising [Unknown]
  - Musculoskeletal pain [Unknown]
  - Memory impairment [Unknown]
  - Vomiting [Unknown]
  - Sciatica [Unknown]
  - Localised infection [Unknown]
  - Fatigue [Unknown]
  - Asthenia [Unknown]
  - Labile hypertension [Unknown]
  - Blood pressure abnormal [Unknown]
  - Injection site pain [Unknown]
  - Abdominal pain upper [Recovered/Resolved]
  - Sciatic nerve injury [Unknown]
  - Arthralgia [Unknown]
  - Erythema [Unknown]

NARRATIVE: CASE EVENT DATE: 2014
